FAERS Safety Report 4548166-7 (Version None)
Quarter: 2005Q1

REPORT INFORMATION
  Report Type: 
  Country: None (occurrence: None)
  Receive Date: 20041227
  Receipt Date: 20040928
  Transmission Date: 20050727
  Serious: No
  Sender: FDA-Public Use
  Company Number: 04P-163-0275120-00

PATIENT
  Age: 48 Year
  Sex: Male
  Weight: 78.0187 kg

DRUGS (6)
  1. HUMIRA [Suspect]
     Indication: RHEUMATOID ARTHRITIS
     Dosage: 40 MG, 1 IN 2 WK, SUBCUTANEOUS
     Route: 058
     Dates: start: 20040825
  2. PREDNISONE [Concomitant]
  3. MULTI-VITAMINS [Concomitant]
  4. GARLIC [Concomitant]
  5. ASCORBIC ACID [Concomitant]
  6. TOCOPHEROL CONCENTRATE CAP [Concomitant]

REACTIONS (2)
  - DYSPEPSIA [None]
  - DYSPNOEA [None]
